FAERS Safety Report 7320069-4 (Version None)
Quarter: 2011Q1

REPORT INFORMATION
  Report Type: 
  Country: None (occurrence: None)
  Receive Date: 20110228
  Receipt Date: 20110221
  Transmission Date: 20110831
  Serious: Yes (Hospitalization)
  Sender: FDA-Public Use
  Company Number: BE-AMGEN-UK277867

PATIENT
  Age: 76 Year
  Sex: Male

DRUGS (7)
  1. PANITUMUMAB [Suspect]
     Indication: COLORECTAL CANCER
     Dosage: 670 MG, Q2WK
     Route: 042
     Dates: start: 20080505
  2. CORDARONE [Concomitant]
     Dosage: 200 MG, QD
     Route: 048
  3. AMG 655 [Suspect]
     Indication: COLORECTAL CANCER
     Dosage: 402 MG, Q2WK
     Route: 042
     Dates: start: 20080505
  4. LANOXIN [Concomitant]
     Dosage: UNK UNK, QD
     Route: 048
  5. FRAXODI [Concomitant]
     Dosage: .6 ML, QD
     Route: 058
  6. SOLU-MEDROL [Concomitant]
     Dosage: 40 MG, UNK
     Route: 042
  7. TAVEGYL                            /00137201/ [Concomitant]
     Dosage: UNK UNK, UNK
     Route: 042

REACTIONS (2)
  - CHILLS [None]
  - PYREXIA [None]
